FAERS Safety Report 5007501-6 (Version None)
Quarter: 2006Q2

REPORT INFORMATION
  Report Type: 
  Country: None (occurrence: None)
  Receive Date: 20060517
  Receipt Date: 20060504
  Transmission Date: 20061013
  Serious: Yes (Hospitalization)
  Sender: FDA-Public Use
  Company Number: US015466

PATIENT
  Age: 64 Year
  Sex: Male
  Weight: 83.9154 kg

DRUGS (13)
  1. ACTIQ [Suspect]
     Indication: PAIN
     Dosage: 400 UG PRN BUCCAL
     Route: 002
     Dates: start: 20040101
  2. ACTIQ [Suspect]
     Indication: SPINAL CORD INJURY
     Dosage: 400 UG PRN BUCCAL
     Route: 002
     Dates: start: 20040101
  3. PERCOCET [Suspect]
     Indication: ANALGESIC EFFECT
     Dosage: 400 UG PRN BUCCAL
     Route: 002
  4. ENDOCET [Suspect]
     Indication: ANALGESIC EFFECT
  5. NEURONTIN [Suspect]
     Indication: PAIN
     Dosage: 300 MG
  6. FENTANYL [Suspect]
     Indication: PAIN
     Dosage: 50 UG Q72HR
  7. TYLENOL W/ CODEINE NO. 3 [Suspect]
     Indication: PAIN
  8. GLIPIZIDE [Concomitant]
  9. AMBIEN [Concomitant]
  10. NEXIUM [Concomitant]
  11. LIPITOR [Concomitant]
  12. METOPROLOL TARTRATE [Concomitant]
  13. EFFEXOR XR [Concomitant]

REACTIONS (5)
  - CONDITION AGGRAVATED [None]
  - CONSTIPATION [None]
  - NAUSEA [None]
  - PAIN [None]
  - VOMITING [None]
